FAERS Safety Report 18028474 (Version 3)
Quarter: 2020Q3

REPORT INFORMATION
  Report Type: Spontaneous
  Country: US (occurrence: US)
  Receive Date: 20200715
  Receipt Date: 20200727
  Transmission Date: 20201103
  Serious: Yes (Disabling, Other)
  Sender: FDA-Public Use
  Company Number: US-PFIZER INC-2019448729

PATIENT
  Age: 46 Year
  Sex: Female

DRUGS (3)
  1. PREMPRO [Suspect]
     Active Substance: ESTROGENS, CONJUGATED\MEDROXYPROGESTERONE ACETATE
     Indication: MENOPAUSAL SYMPTOMS
     Dosage: 1 TABLET, 1X/DAY
     Route: 048
     Dates: start: 2018, end: 201901
  2. ENBREL [Concomitant]
     Active Substance: ETANERCEPT
     Dosage: UNK
  3. PREMPRO [Suspect]
     Active Substance: ESTROGENS, CONJUGATED\MEDROXYPROGESTERONE ACETATE
     Indication: HORMONE REPLACEMENT THERAPY
     Dosage: 1 TABLET, 1X/DAY
     Route: 048
     Dates: start: 20191101

REACTIONS (4)
  - Product use issue [Unknown]
  - Off label use [Unknown]
  - Joint injury [Unknown]
  - Nerve injury [Unknown]

NARRATIVE: CASE EVENT DATE: 2018
